FAERS Safety Report 11663614 (Version 1)
Quarter: 2015Q4

REPORT INFORMATION
  Report Type: Spontaneous
  Country: IT (occurrence: IT)
  Receive Date: 20151027
  Receipt Date: 20151027
  Transmission Date: 20160304
  Serious: Yes (Other)
  Sender: FDA-Public Use
  Company Number: IT-TEVA-604350ISR

PATIENT
  Age: 9 Decade
  Sex: Male

DRUGS (7)
  1. DUTASTERIDE. [Concomitant]
     Active Substance: DUTASTERIDE
     Dosage: SINCE SEVERAL YEARS
     Route: 065
  2. ASPIRIN. [Concomitant]
     Active Substance: ASPIRIN
     Dosage: SINCE SEVERAL YEARS
     Route: 065
  3. LEVODOPA, CARBIDOPA [Suspect]
     Active Substance: CARBIDOPA\LEVODOPA
     Indication: PARKINSON^S DISEASE
     Dosage: 100/25 MG 2 CP/DIE
     Route: 065
     Dates: start: 201006
  4. ESCITALOPRAM [Concomitant]
     Active Substance: ESCITALOPRAM OXALATE
     Dosage: SINCE SEVERAL YEARS
     Route: 065
  5. LEVODOPA, BENSERAZIDE [Suspect]
     Active Substance: BENSERAZIDE HYDROCHLORIDE\LEVODOPA
     Indication: PARKINSON^S DISEASE
     Dosage: 100/25 MG 2 CP/DIE
     Route: 065
  6. LEVODOPA, BENSERAZIDE [Suspect]
     Active Substance: BENSERAZIDE HYDROCHLORIDE\LEVODOPA
     Dosage: 100/25 MG 1 CP/DIE
     Route: 065
  7. TAMSULOSIN [Concomitant]
     Active Substance: TAMSULOSIN
     Dosage: SINCE SEVERAL YEARS
     Route: 065

REACTIONS (1)
  - Neutropenia [Recovered/Resolved]
